FAERS Safety Report 9821990 (Version 1)
Quarter: 2014Q1

REPORT INFORMATION
  Report Type: Spontaneous
  Country: CA (occurrence: CA)
  Receive Date: 20140116
  Receipt Date: 20140116
  Transmission Date: 20141002
  Serious: Yes (Other)
  Sender: FDA-Public Use
  Company Number: CA-ASTRAZENECA-2014SE01555

PATIENT
  Age: 99 Year
  Sex: Female
  Weight: 68 kg

DRUGS (10)
  1. SEROQUEL [Suspect]
     Route: 048
  2. ACETAMINOPHEN [Concomitant]
  3. ASPIRIN [Concomitant]
  4. FUROSEMIDE [Concomitant]
  5. POTASSIUM CHLORIDE [Concomitant]
  6. TAMSULOSIN [Concomitant]
  7. CANDESARTAN CILEXETIL [Concomitant]
     Route: 048
  8. CIPRALEX [Concomitant]
     Route: 048
  9. HEPARIN SODIUM [Concomitant]
     Route: 042
  10. PREGABALIN [Concomitant]
     Route: 048

REACTIONS (1)
  - Platelet count abnormal [Recovered/Resolved]
